FAERS Safety Report 13933583 (Version 3)
Quarter: 2017Q4

REPORT INFORMATION
  Report Type: Spontaneous
  Country: US (occurrence: US)
  Receive Date: 20170904
  Receipt Date: 20171031
  Transmission Date: 20180320
  Serious: No
  Sender: FDA-Public Use
  Company Number: PHEH2017US027568

PATIENT
  Sex: Male

DRUGS (4)
  1. LENVATINIB [Suspect]
     Active Substance: LENVATINIB
     Indication: LUNG NEOPLASM MALIGNANT
  2. AFINITOR [Suspect]
     Active Substance: EVEROLIMUS
     Dosage: 4 WEEKS ON AND 2 WEEKS OFF
     Route: 065
  3. AFINITOR [Suspect]
     Active Substance: EVEROLIMUS
     Indication: PRODUCT USED FOR UNKNOWN INDICATION
     Dosage: UNK
     Route: 065
  4. LENVATINIB [Suspect]
     Active Substance: LENVATINIB
     Indication: BRAIN NEOPLASM MALIGNANT
     Dosage: DAILY FOR 5 WEEKS ON AND ONE WEEK OFF
     Route: 048
     Dates: start: 20161214

REACTIONS (6)
  - Asthenia [Unknown]
  - Muscular weakness [Unknown]
  - Weight decreased [Unknown]
  - Amnesia [Unknown]
  - Decreased appetite [Unknown]
  - Weight increased [Unknown]
